FAERS Safety Report 11662097 (Version 1)
Quarter: 2015Q4

REPORT INFORMATION
  Report Type: Spontaneous
  Country: IN (occurrence: IN)
  Receive Date: 20151026
  Receipt Date: 20151026
  Transmission Date: 20160304
  Serious: Yes (Death, Other)
  Sender: FDA-Public Use
  Company Number: IN-MYLANLABS-2015M1036327

PATIENT

DRUGS (1)
  1. VALPROATE SEMISODIUM [Suspect]
     Active Substance: DIVALPROEX SODIUM
     Indication: DYSTONIA
     Dosage: 500MG
     Route: 065

REACTIONS (3)
  - Somnolence [Unknown]
  - Myoglobinuria [Unknown]
  - Acute kidney injury [Fatal]
